FAERS Safety Report 13669266 (Version 2)
Quarter: 2017Q3

REPORT INFORMATION
  Report Type: Spontaneous
  Country: US (occurrence: US)
  Receive Date: 20170620
  Receipt Date: 20170801
  Transmission Date: 20171127
  Serious: Yes (Hospitalization)
  Sender: FDA-Public Use
  Company Number: US-BEH-2017081398

PATIENT
  Sex: Male
  Weight: 65.76 kg

DRUGS (29)
  1. VITAMIN B-6 [Concomitant]
     Active Substance: PYRIDOXINE
  2. IBUPROFEN. [Concomitant]
     Active Substance: IBUPROFEN
  3. RIFABUTIN. [Concomitant]
     Active Substance: RIFABUTIN
  4. CATHFLO ACTIVASE [Concomitant]
     Active Substance: ALTEPLASE
  5. ALBUTEROL                          /00139501/ [Concomitant]
     Active Substance: ALBUTEROL
  6. XOPENEX [Concomitant]
     Active Substance: LEVALBUTEROL HYDROCHLORIDE
  7. OXYGEN. [Concomitant]
     Active Substance: OXYGEN
  8. ZEMAIRA [Suspect]
     Active Substance: .ALPHA.1-PROTEINASE INHIBITOR HUMAN
     Dosage: UNK
     Route: 042
  9. PREDNISONE. [Concomitant]
     Active Substance: PREDNISONE
  10. STERILE WATER [Concomitant]
     Active Substance: WATER
  11. AVELOX [Concomitant]
     Active Substance: MOXIFLOXACIN HYDROCHLORIDE
  12. HEPARIN [Concomitant]
     Active Substance: HEPARIN SODIUM
  13. LMX                                /00033401/ [Concomitant]
  14. ZEMAIRA [Suspect]
     Active Substance: .ALPHA.1-PROTEINASE INHIBITOR HUMAN
     Indication: ALPHA-1 ANTI-TRYPSIN DEFICIENCY
     Dosage: 60 MG/KG, QW
     Route: 042
     Dates: start: 20160113
  15. VITAMIN B12 [Concomitant]
     Active Substance: CYANOCOBALAMIN
  16. DIPHENHYDRAMINE. [Concomitant]
     Active Substance: DIPHENHYDRAMINE
  17. SODIUM CHLORIDE. [Concomitant]
     Active Substance: SODIUM CHLORIDE
  18. TRAMADOL. [Concomitant]
     Active Substance: TRAMADOL
  19. FISH OIL W/VITAMIN D NOS [Concomitant]
  20. GABAPENTIN ^PCD^ [Concomitant]
     Active Substance: GABAPENTIN
  21. DALIRESP [Concomitant]
     Active Substance: ROFLUMILAST
  22. CLOFAZIMINE [Concomitant]
     Active Substance: CLOFAZIMINE
  23. EPIPEN [Concomitant]
     Active Substance: EPINEPHRINE
  24. XANAX [Concomitant]
     Active Substance: ALPRAZOLAM
  25. PANTOPRAZOLE [Concomitant]
     Active Substance: PANTOPRAZOLE
  26. AZITHROMYCIN ANHYDROUS. [Concomitant]
     Active Substance: AZITHROMYCIN ANHYDROUS
  27. VITAMIN D3 [Concomitant]
     Active Substance: CHOLECALCIFEROL
  28. PROBIOTIC                          /06395501/ [Concomitant]
     Active Substance: BIFIDOBACTERIUM ANIMALIS LACTIS
  29. SPIRIVA [Concomitant]
     Active Substance: TIOTROPIUM BROMIDE MONOHYDRATE

REACTIONS (1)
  - Cardiac disorder [Unknown]
